FAERS Safety Report 13236717 (Version 2)
Quarter: 2017Q2

REPORT INFORMATION
  Report Type: Spontaneous
  Country: US (occurrence: US)
  Receive Date: 20170215
  Receipt Date: 20170424
  Transmission Date: 20170830
  Serious: Yes (Other)
  Sender: FDA-Public Use
  Company Number: US-BAYER-2017-030175

PATIENT
  Age: 32 Year
  Sex: Female

DRUGS (1)
  1. BETASERON [Suspect]
     Active Substance: INTERFERON BETA-1B
     Indication: MULTIPLE SCLEROSIS
     Dosage: UNK

REACTIONS (6)
  - Gait disturbance [None]
  - Anaphylactic reaction [None]
  - Diplopia [None]
  - Skin reaction [None]
  - Multiple sclerosis relapse [None]
  - Multiple sclerosis relapse [None]

NARRATIVE: CASE EVENT DATE: 200710
